FAERS Safety Report 11803967 (Version 1)
Quarter: 2015Q4

REPORT INFORMATION
  Report Type: Spontaneous
  Country: DE (occurrence: DE)
  Receive Date: 20151204
  Receipt Date: 20151204
  Transmission Date: 20160305
  Serious: Yes (Death, Congenital Anomaly)
  Sender: FDA-Public Use
  Company Number: DE-ASTRAZENECA-2015SF20170

PATIENT
  Sex: Male
  Weight: .8 kg

DRUGS (5)
  1. QUILONORM RETARD [Suspect]
     Active Substance: LITHIUM CARBONATE
     Indication: BIPOLAR DISORDER
     Dosage: 2250 [MG/D ]/ INITIALLY 1125MG -0-1125 MG/D, THEN REDUCED TO 675MG/D
     Route: 064
     Dates: start: 20150414, end: 20150930
  2. SEROQUEL [Suspect]
     Active Substance: QUETIAPINE FUMARATE
     Indication: BIPOLAR DISORDER
     Route: 064
  3. FOLIC ACID. [Concomitant]
     Active Substance: FOLIC ACID
     Indication: PROPHYLAXIS OF NEURAL TUBE DEFECT
     Route: 064
     Dates: start: 20150414, end: 20150713
  4. SEROQUEL [Suspect]
     Active Substance: QUETIAPINE FUMARATE
     Indication: BIPOLAR DISORDER
     Dosage: 50 MG/D / 25 MG/D IN 1ST TRIMESTER, 50 MG/D
     Route: 064
     Dates: start: 20150414, end: 20150930
  5. ZOLPIDEM [Concomitant]
     Active Substance: ZOLPIDEM\ZOLPIDEM TARTRATE
     Route: 064

REACTIONS (3)
  - Ebstein^s anomaly [Not Recovered/Not Resolved]
  - Foetal death [Fatal]
  - Hydrops foetalis [Not Recovered/Not Resolved]
